FAERS Safety Report 13002264 (Version 1)
Quarter: 2016Q4

REPORT INFORMATION
  Report Type: Report from Study
  Country: US (occurrence: US)
  Receive Date: 20161206
  Receipt Date: 20161206
  Transmission Date: 20170207
  Serious: Yes (Hospitalization)
  Sender: FDA-Public Use
  Company Number: US-JNJFOC-20161017718

PATIENT
  Age: 84 Year
  Sex: Female

DRUGS (9)
  1. SYNTHROID [Concomitant]
     Active Substance: LEVOTHYROXINE SODIUM
  2. PRAVASTATIN. [Concomitant]
     Active Substance: PRAVASTATIN
  3. TYLENOL [Concomitant]
     Active Substance: ACETAMINOPHEN
  4. MAGNESIUM [Concomitant]
     Active Substance: MAGNESIUM
  5. IMBRUVICA [Suspect]
     Active Substance: IBRUTINIB
     Indication: WALDENSTROM^S MACROGLOBULINAEMIA
     Route: 048
     Dates: start: 20160923
  6. TRIAMTERENE. [Concomitant]
     Active Substance: TRIAMTERENE
  7. ATENOLOL. [Concomitant]
     Active Substance: ATENOLOL
  8. VITAMIN D [Concomitant]
     Active Substance: CHOLECALCIFEROL
  9. JUICE PLUS [Concomitant]
     Active Substance: DIETARY SUPPLEMENT

REACTIONS (7)
  - Blood pressure decreased [Recovered/Resolved]
  - Asthenia [Unknown]
  - Mobility decreased [Unknown]
  - Pollakiuria [Not Recovered/Not Resolved]
  - Eyelid ptosis [Unknown]
  - Hypersomnia [Not Recovered/Not Resolved]
  - Fatigue [Not Recovered/Not Resolved]

NARRATIVE: CASE EVENT DATE: 20161123
